FAERS Safety Report 5261324-1 (Version None)
Quarter: 2007Q1

REPORT INFORMATION
  Report Type: 
  Country: None (occurrence: None)
  Receive Date: 20070307
  Receipt Date: 20070223
  Transmission Date: 20070707
  Serious: Yes (Hospitalization)
  Sender: FDA-Public Use
  Company Number: 2006BI017687

PATIENT
  Age: 47 Year
  Sex: Male
  Weight: 90.2658 kg

DRUGS (2)
  1. AVONEX [Suspect]
     Indication: MULTIPLE SCLEROSIS
     Dosage: 30 UG;QW;IM
     Route: 030
     Dates: start: 19980401, end: 20061113
  2. AVONEX [Suspect]
     Indication: MULTIPLE SCLEROSIS
     Dosage: 30 UG;QW;IM
     Route: 030
     Dates: start: 20070101

REACTIONS (5)
  - HEMIPARESIS [None]
  - HYPOAESTHESIA [None]
  - OPTIC NEURITIS [None]
  - PNEUMONIA [None]
  - PULMONARY MASS [None]
